FAERS Safety Report 5711067-2 (Version None)
Quarter: 2008Q2

REPORT INFORMATION
  Report Type: 
  Country: None (occurrence: None)
  Receive Date: 20080421
  Receipt Date: 20080410
  Transmission Date: 20081010
  Serious: Yes (Hospitalization, Other)
  Sender: FDA-Public Use
  Company Number: US-BAYER-US-2006-027421

PATIENT
  Age: 41 Year
  Sex: Female
  Weight: 62 kg

DRUGS (17)
  1. CAMPATH [Suspect]
     Indication: LIVER TRANSPLANT
     Dosage: UNIT DOSE: 30 MG
     Route: 042
     Dates: start: 20051108, end: 20051108
  2. CAMPATH [Suspect]
     Dosage: UNIT DOSE: 30 MG
     Route: 042
     Dates: start: 20051112, end: 20051112
  3. TACROLIMUS [Suspect]
     Indication: LIVER TRANSPLANT
     Dosage: TOTAL DAILY DOSE: 4 MG
     Route: 048
     Dates: start: 20051108
  4. TACROLIMUS [Suspect]
     Dosage: TOTAL DAILY DOSE: 9 MG
     Route: 048
  5. TACROLIMUS [Concomitant]
     Indication: IMMUNOSUPPRESSANT DRUG THERAPY
     Dosage: UNIT DOSE: 4.5 MG
     Dates: start: 20051108
  6. PROTONIX [Concomitant]
     Dates: start: 20051108
  7. SEPTRA [Concomitant]
     Dates: start: 20051108
  8. VALCYTE [Concomitant]
     Dates: start: 20051119
  9. NORVASC [Concomitant]
     Dates: start: 20051119
  10. M.V.I. [Concomitant]
     Dates: start: 20060331
  11. ACTIGALL [Concomitant]
     Dates: start: 20060402
  12. NORCO [Concomitant]
     Dates: start: 20060403
  13. PENTAMIDINE ISETHIONATE [Concomitant]
     Dates: start: 20060401
  14. PROPRANOLOL [Concomitant]
     Dates: start: 20060403
  15. MAGNESIUM [Concomitant]
     Dates: start: 20060404
  16. POTASSIUM CHLORIDE [Concomitant]
     Dates: start: 20060405, end: 20060405
  17. MYCELEX [Concomitant]
     Dates: start: 20060405

REACTIONS (1)
  - LIVER TRANSPLANT REJECTION [None]
